FAERS Safety Report 9311018 (Version 2)
Quarter: 2013Q2

REPORT INFORMATION
  Report Type: Spontaneous
  Country: US (occurrence: US)
  Receive Date: 20130528
  Receipt Date: 20130611
  Transmission Date: 20140414
  Serious: Yes (Hospitalization, Other)
  Sender: FDA-Public Use
  Company Number: US-ELI_LILLY_AND_COMPANY-US201305008009

PATIENT
  Age: 65 Year
  Sex: Female

DRUGS (1)
  1. CYMBALTA [Suspect]
     Dosage: 60 MG, QD

REACTIONS (5)
  - Injury [Unknown]
  - Road traffic accident [Unknown]
  - Blood glucose decreased [Unknown]
  - Suicidal ideation [Unknown]
  - Diabetes mellitus [Unknown]
